FAERS Safety Report 7782804-0 (Version None)
Quarter: 2011Q3

REPORT INFORMATION
  Report Type: 
  Country: None (occurrence: None)
  Receive Date: 20110927
  Receipt Date: 20110927
  Transmission Date: 20111222
  Serious: No
  Sender: FDA-Public Use
  Company Number: None

PATIENT
  Sex: Male

DRUGS (1)
  1. XELODA [Suspect]
     Dosage: 1500MG BID PO
     Route: 048
     Dates: start: 20110910, end: 20110923

REACTIONS (2)
  - ASTHENIA [None]
  - ABASIA [None]
